FAERS Safety Report 4392090-X (Version None)
Quarter: 2004Q3

REPORT INFORMATION
  Report Type: 
  Country: None (occurrence: None)
  Receive Date: 20040702
  Receipt Date: 20040702
  Transmission Date: 20050211
  Serious: Yes (Hospitalization)
  Sender: FDA-Public Use
  Company Number: None

PATIENT
  Age: 83 Year
  Sex: Male
  Weight: 68.7 kg

DRUGS (11)
  1. INTEGRILIN [Suspect]
     Indication: ANTIPLATELET THERAPY
     Dosage: 2(6.2 ML BOLUSES)5.5 ML/HR IV
     Route: 042
     Dates: start: 20040618, end: 20040614
  2. HEPARIN [Suspect]
     Dosage: 3.410 UNITS IV
     Route: 042
     Dates: start: 20040618
  3. MIDAZOLAM HCL [Concomitant]
  4. FENTANYL [Concomitant]
  5. LIDOCAINE [Concomitant]
  6. NITROGLYCERIN [Concomitant]
  7. CEFAZOLIN [Concomitant]
  8. ASPIRIN [Concomitant]
  9. CLOPIDOGREL [Concomitant]
  10. PEPCID [Concomitant]
  11. ACETYLCYSTEINE [Concomitant]

REACTIONS (2)
  - POST PROCEDURAL HAEMATOMA [None]
  - WOUND SECRETION [None]
